FAERS Safety Report 4560291-3 (Version None)
Quarter: 2005Q1

REPORT INFORMATION
  Report Type: 
  Country: None (occurrence: None)
  Receive Date: 20050119
  Receipt Date: 20050119
  Transmission Date: 20050727
  Serious: Yes (Hospitalization)
  Sender: FDA-Public Use
  Company Number: None

PATIENT
  Age: 64 Year
  Sex: Male
  Weight: 134 kg

DRUGS (2)
  1. SIMVASTATIN [Suspect]
     Indication: LIPIDS
     Dosage: 40 MG QD
     Dates: start: 20000401, end: 20040801
  2. METFORMIN HCL [Suspect]
     Indication: DIABETES MELLITUS NON-INSULIN-DEPENDENT
     Dosage: 1000 MG BID
     Dates: start: 20040601, end: 20040601

REACTIONS (1)
  - RHABDOMYOLYSIS [None]
